FAERS Safety Report 8562981 (Version 2)
Quarter: 2012Q4

REPORT INFORMATION
  Report Type: 
  Country: US (occurrence: US)
  Receive Date: 20120515
  Receipt Date: 20121012
  Transmission Date: 20130627
  Serious: Yes (Hospitalization, Other)
  Sender: FDA-Public Use
  Company Number: US-BAYER-2012-046664

PATIENT
  Age: 29 Year
  Sex: Female
  Weight: 108.84 kg

DRUGS (14)
  1. YAZ [Suspect]
     Dosage: UNK
     Dates: start: 2008, end: 2011
  2. YASMIN [Suspect]
     Dosage: UNK
     Dates: start: 2008, end: 2011
  3. OCELLA [Suspect]
     Dosage: UNK
     Dates: start: 2008, end: 2011
  4. PROPOXYPHENE HCL AND ACETAMINOPHEN [Concomitant]
     Dosage: 50-325mg
  5. OXYCODONE HYDROCHLORIDE [Concomitant]
     Dosage: 10 mg, UNK
  6. HYDROXYZINE [Concomitant]
     Dosage: 50 mg, UNK
  7. LORAZEPAM [Concomitant]
     Dosage: 1 mg, UNK
  8. AMOXICILLIN TRIHYDRATE W/CLAVULANTE POTASSIUM [Concomitant]
     Dosage: 875-125mg
  9. CYCLOBENZAPRINE [Concomitant]
     Dosage: 10 mg, UNK
  10. AMITRIPTYLINE HYDROCHLORIDE [Concomitant]
     Dosage: 25 mg, UNK
  11. SEROQUEL [Concomitant]
     Dosage: 300 mg, UNK
  12. DIVALPROEX SODIUM [Concomitant]
     Dosage: 500 mg, UNK
  13. CITALOPRAM HYDROBROMIDE [Concomitant]
     Dosage: 40 mg, UNK
  14. GABAPENTIN [Concomitant]
     Dosage: 600 mg, UNK

REACTIONS (9)
  - Gallbladder injury [None]
  - Thyroidectomy [None]
  - Convulsion [None]
  - Anxiety [None]
  - Pain [None]
  - Injury [None]
  - General physical health deterioration [None]
  - Emotional distress [None]
  - Mental disorder [None]
